FAERS Safety Report 18118333 (Version 1)
Quarter: 2020Q3

REPORT INFORMATION
  Report Type: Spontaneous
  Country: US (occurrence: US)
  Receive Date: 20200806
  Receipt Date: 20200806
  Transmission Date: 20201103
  Serious: No
  Sender: FDA-Public Use
  Company Number: US-EYEPOINT PHARMACEUTICALS, INC.-US-EYP-20-00330

PATIENT
  Sex: Male

DRUGS (2)
  1. YUTIQ [Suspect]
     Active Substance: FLUOCINOLONE ACETONIDE
     Route: 065
     Dates: start: 20200612, end: 20200612
  2. YUTIQ [Suspect]
     Active Substance: FLUOCINOLONE ACETONIDE
     Indication: CHORIORETINITIS
     Route: 065
     Dates: start: 20200608, end: 20200608

REACTIONS (3)
  - No adverse event [Unknown]
  - Product packaging issue [Unknown]
  - Product dose omission issue [Unknown]
